FAERS Safety Report 8880083 (Version 4)
Quarter: 2013Q2

REPORT INFORMATION
  Report Type: Spontaneous
  Country: US (occurrence: US)
  Receive Date: 20121101
  Receipt Date: 20130416
  Transmission Date: 20140414
  Serious: Yes (Hospitalization, Other)
  Sender: FDA-Public Use
  Company Number: US-009507513-97021737

PATIENT
  Sex: Female
  Weight: 59.41 kg

DRUGS (9)
  1. FOSAMAX [Suspect]
     Dosage: 10 MG, QD
     Route: 048
     Dates: start: 199610, end: 200201
  2. FOSAMAX [Suspect]
     Dosage: 70 MG, QW
     Route: 048
     Dates: start: 200201, end: 200802
  3. FOSAMAX [Suspect]
     Indication: OSTEOPOROSIS
     Dosage: 70 MG, QW
     Route: 048
     Dates: start: 20080221
  4. FOSAMAX [Suspect]
     Indication: OSTEOPENIA
  5. ALENDRONATE SODIUM [Suspect]
     Indication: OSTEOPOROSIS
     Dosage: 70 MG, QW
     Route: 048
     Dates: start: 200201
  6. ALENDRONATE SODIUM [Suspect]
     Indication: OSTEOPENIA
  7. MEVACOR [Concomitant]
     Route: 048
  8. SYNTHROID [Concomitant]
  9. BROMFED [Concomitant]

REACTIONS (37)
  - Intramedullary rod insertion [Unknown]
  - Intramedullary rod insertion [Unknown]
  - Femur fracture [Unknown]
  - Femur fracture [Unknown]
  - Chest discomfort [Recovered/Resolved]
  - Fall [Unknown]
  - Fall [Unknown]
  - Cellulitis [Recovering/Resolving]
  - Cervicogenic headache [Unknown]
  - Bursitis [Recovering/Resolving]
  - Spinal osteoarthritis [Unknown]
  - Cellulitis staphylococcal [Unknown]
  - Appendicectomy [Unknown]
  - Tendon sheath incision [Unknown]
  - Cellulitis [Unknown]
  - Sternal fracture [Recovered/Resolved]
  - Fall [Recovered/Resolved]
  - Appendicitis [Unknown]
  - Haemangioma of liver [Unknown]
  - Depression [Unknown]
  - Osteoarthritis [Unknown]
  - Hepatic cyst [Unknown]
  - Dermal cyst [Unknown]
  - Cholelithiasis [Unknown]
  - Kidney malrotation [Unknown]
  - Renal cyst [Unknown]
  - Diverticulitis [Unknown]
  - Trigger finger [Unknown]
  - Trigger finger [Unknown]
  - Osteoporosis [Unknown]
  - Arthropod bite [Unknown]
  - Intervertebral disc degeneration [Unknown]
  - Sciatica [Unknown]
  - Inguinal hernia [Unknown]
  - Dyspepsia [Unknown]
  - Drug ineffective [Unknown]
  - Drug ineffective [Unknown]
